FAERS Safety Report 13364059 (Version 2)
Quarter: 2017Q2

REPORT INFORMATION
  Report Type: Spontaneous
  Country: US (occurrence: US)
  Receive Date: 20170323
  Receipt Date: 20170404
  Transmission Date: 20170830
  Serious: No
  Sender: FDA-Public Use
  Company Number: US-MATRIXX INITIATIVES, INC.-1064581

PATIENT
  Age: 63 Year
  Sex: Female

DRUGS (4)
  1. UNSPECIFIED HYPERTENSIVE MEDICATION [Concomitant]
     Active Substance: UNSPECIFIED INGREDIENT
  2. ZICAM COLD REMEDY NASAL SWABS (HOMEOPATHICS) [Suspect]
     Active Substance: HOMEOPATHICS\ZINC ACETATE\ZINC GLUCONATE
     Indication: VIRAL UPPER RESPIRATORY TRACT INFECTION
     Route: 045
     Dates: start: 20161225, end: 20170103
  3. BABY ASPIRIN [Concomitant]
     Active Substance: ASPIRIN
  4. SYNTHROID [Concomitant]
     Active Substance: LEVOTHYROXINE SODIUM

REACTIONS (2)
  - Parosmia [Not Recovered/Not Resolved]
  - Ageusia [Not Recovered/Not Resolved]
